FAERS Safety Report 11649695 (Version 1)
Quarter: 2015Q4

REPORT INFORMATION
  Report Type: Spontaneous
  Country: US (occurrence: US)
  Receive Date: 20151021
  Receipt Date: 20151021
  Transmission Date: 20160304
  Serious: Yes (Death, Other)
  Sender: FDA-Public Use
  Company Number: US-PFIZER INC-2015350108

PATIENT
  Age: 78 Year
  Sex: Male
  Weight: 122 kg

DRUGS (1)
  1. REVATIO [Suspect]
     Active Substance: SILDENAFIL CITRATE
     Indication: LUNG DISORDER
     Dosage: UNK
     Dates: start: 201503

REACTIONS (1)
  - Death [Fatal]

NARRATIVE: CASE EVENT DATE: 20150714
